FAERS Safety Report 8496979-1 (Version None)
Quarter: 2012Q3

REPORT INFORMATION
  Report Type: 
  Country: None (occurrence: None)
  Receive Date: 20120709
  Receipt Date: 20120605
  Transmission Date: 20120928
  Serious: No
  Sender: FDA-Public Use
  Company Number: US-AMGEN-USASP2012035207

PATIENT
  Age: 36 Year
  Sex: Female

DRUGS (1)
  1. ENBREL [Suspect]
     Indication: PRODUCT USED FOR UNKNOWN INDICATION
     Dosage: 50 MG, QWK
     Dates: start: 20120301

REACTIONS (8)
  - FEELING HOT [None]
  - ERYTHEMA [None]
  - HEADACHE [None]
  - PRURITUS [None]
  - RASH ERYTHEMATOUS [None]
  - SINUS CONGESTION [None]
  - SWELLING [None]
  - PYREXIA [None]
